FAERS Safety Report 4850332-8 (Version None)
Quarter: 2005Q4

REPORT INFORMATION
  Report Type: 
  Country: None (occurrence: None)
  Receive Date: 20051207
  Receipt Date: 20051207
  Transmission Date: 20060501
  Serious: Yes (Hospitalization)
  Sender: FDA-Public Use
  Company Number: None

PATIENT
  Age: 18 Year
  Sex: Male
  Weight: 59 kg

DRUGS (1)
  1. FOSPHENYTOIN SODIUM [Suspect]
     Indication: CONVULSION
     Dosage: 1000MG IV X 1    1 TIME
     Route: 042

REACTIONS (2)
  - BLOOD PRESSURE DECREASED [None]
  - BRADYCARDIA [None]
